FAERS Safety Report 8353372-X (Version None)
Quarter: 2012Q2

REPORT INFORMATION
  Report Type: 
  Country: None (occurrence: None)
  Receive Date: 20120511
  Receipt Date: 20120503
  Transmission Date: 20120825
  Serious: Yes (Hospitalization, Other)
  Sender: FDA-Public Use
  Company Number: CA-ASTRAZENECA-2012SE26673

PATIENT
  Age: 71 Year
  Sex: Female
  Weight: 63 kg

DRUGS (27)
  1. BRILINTA [Suspect]
     Indication: ACUTE CORONARY SYNDROME
     Route: 048
     Dates: start: 20120405, end: 20120423
  2. NITROGLYCERIN [Concomitant]
     Route: 061
     Dates: start: 20120331
  3. CALCIUM [Concomitant]
  4. MULTI VITAMIN/MINERAL SUPPLEMENTS [Concomitant]
  5. VITAMIN B-12 [Concomitant]
  6. PERINDOPRIL ERBUMINE [Concomitant]
     Route: 048
     Dates: start: 20120331, end: 20120420
  7. D3 [Concomitant]
  8. LOVAZA [Concomitant]
  9. PLAVIX [Concomitant]
     Route: 048
     Dates: start: 20120331, end: 20120405
  10. CALCIUM [Concomitant]
  11. VITAMIN B6 [Concomitant]
  12. ZOFRAN [Concomitant]
     Indication: NAUSEA
     Dosage: AS REQUIRED
  13. D3 [Concomitant]
  14. FOLIC ACID [Concomitant]
  15. AMINO ACID SUPPLEMENTS [Concomitant]
  16. ULTRA CRANBERRY [Concomitant]
  17. ATORVASTATIN CALCIUM [Concomitant]
     Route: 048
     Dates: start: 20120331, end: 20120422
  18. COLCHICINE [Concomitant]
     Indication: GOUT
     Route: 048
     Dates: start: 20120407, end: 20120409
  19. SUPER VISION MULTI+LUTEIN [Concomitant]
  20. BLUEBERRY CONCENTRATE [Concomitant]
  21. BRILINTA [Suspect]
     Indication: MYOCARDIAL INFARCTION
     Route: 048
     Dates: start: 20120405, end: 20120423
  22. ASPIRIN [Concomitant]
     Route: 048
     Dates: start: 20120331
  23. PANTOPRAZOLE SODIUM [Concomitant]
     Route: 048
     Dates: start: 20120409
  24. METOPROLOL TARTRATE [Concomitant]
     Route: 048
     Dates: start: 20120331
  25. AMLODIPINE BESYLATE [Concomitant]
     Route: 048
     Dates: start: 20120331, end: 20120409
  26. CEFTRIAXONE [Concomitant]
     Dates: start: 20120418
  27. FLAGYL [Concomitant]
     Route: 042
     Dates: start: 20120423

REACTIONS (12)
  - FATIGUE [None]
  - COUGH [None]
  - MYALGIA [None]
  - RENAL CYST [None]
  - PYREXIA [None]
  - RASH [None]
  - DECREASED APPETITE [None]
  - LIVER FUNCTION TEST ABNORMAL [None]
  - CHEST PAIN [None]
  - STOMATITIS [None]
  - RENAL IMPAIRMENT [None]
  - MITRAL VALVE INCOMPETENCE [None]
